FAERS Safety Report 4399537-3 (Version None)
Quarter: 2004Q3

REPORT INFORMATION
  Report Type: 
  Country: None (occurrence: None)
  Receive Date: 20040716
  Receipt Date: 20030825
  Transmission Date: 20050211
  Serious: Yes (Other)
  Sender: FDA-Public Use
  Company Number: DE-GLAXOSMITHKLINE-B0307584A

PATIENT
  Age: 66 Year
  Sex: Female
  Weight: 53 kg

DRUGS (2)
  1. TOPOTECAN [Suspect]
     Dosage: 1MGM2 PER DAY
     Route: 042
     Dates: start: 20030731, end: 20030804
  2. ETOPOSIDE [Suspect]
     Dosage: 80MGM2 PER DAY
     Route: 042
     Dates: start: 20030802, end: 20030804

REACTIONS (1)
  - HYPOACUSIS [None]
